FAERS Safety Report 5718883-1 (Version None)
Quarter: 2008Q2

REPORT INFORMATION
  Report Type: 
  Country: None (occurrence: None)
  Receive Date: 20080423
  Receipt Date: 20080415
  Transmission Date: 20081010
  Serious: Yes (Hospitalization, Disabling)
  Sender: FDA-Public Use
  Company Number: GXKR2008DE02592

PATIENT
  Sex: Female

DRUGS (3)
  1. METOHEXAL (NGX)(METOPROLOL) TABLET [Suspect]
     Indication: HYPERTENSION
     Dosage: ORAL
     Route: 048
     Dates: start: 20070701
  2. ZINACEF [Concomitant]
  3. DIFLUCAN [Concomitant]

REACTIONS (6)
  - DERMATITIS [None]
  - DERMATITIS PSORIASIFORM [None]
  - GENERAL PHYSICAL HEALTH DETERIORATION [None]
  - HYPERKERATOSIS [None]
  - REACTION TO DRUG EXCIPIENTS [None]
  - SKIN FISSURES [None]
